FAERS Safety Report 7563738-3 (Version None)
Quarter: 2011Q2

REPORT INFORMATION
  Report Type: 
  Country: None (occurrence: None)
  Receive Date: 20110622
  Receipt Date: 20110617
  Transmission Date: 20111010
  Serious: Yes (Death, Hospitalization, Other)
  Sender: FDA-Public Use
  Company Number: US-MERCK-1104USA02896

PATIENT
  Age: 84 Year
  Sex: Female
  Weight: 54 kg

DRUGS (6)
  1. ALOXI [Concomitant]
     Route: 065
  2. CARBOPLATIN [Concomitant]
     Route: 065
  3. IVEMEND [Suspect]
     Indication: PROPHYLAXIS OF NAUSEA AND VOMITING
     Route: 041
     Dates: start: 20110418, end: 20110418
  4. TAXOTERE [Concomitant]
     Route: 065
  5. IVEMEND [Suspect]
     Route: 041
     Dates: start: 20110418, end: 20110418
  6. DECADRON [Concomitant]
     Route: 065

REACTIONS (6)
  - BACK PAIN [None]
  - BLOOD PRESSURE INCREASED [None]
  - COMA [None]
  - HYPERSENSITIVITY [None]
  - MALIGNANT PERITONEAL NEOPLASM [None]
  - ADVERSE EVENT [None]
